FAERS Safety Report 22661959 (Version 3)
Quarter: 2023Q4

REPORT INFORMATION
  Report Type: Spontaneous
  Country: KR (occurrence: KR)
  Receive Date: 20230630
  Receipt Date: 20231227
  Transmission Date: 20240110
  Serious: Yes (Hospitalization)
  Sender: FDA-Public Use
  Company Number: KR-009507513-2305KOR000208

PATIENT
  Age: 58 Year
  Sex: Female
  Weight: 53.4 kg

DRUGS (5)
  1. PEMBROLIZUMAB [Suspect]
     Active Substance: PEMBROLIZUMAB
     Indication: Endometrial cancer recurrent
     Dosage: 200 MILLIGRAM
     Route: 042
     Dates: start: 20230418
  2. PEMBROLIZUMAB [Suspect]
     Active Substance: PEMBROLIZUMAB
     Dosage: 200 MILLIGRAM
     Route: 042
     Dates: start: 20230508
  3. PEMBROLIZUMAB [Suspect]
     Active Substance: PEMBROLIZUMAB
     Dosage: 200 MILLIGRAM
     Route: 042
     Dates: start: 20230529
  4. LENVATINIB MESYLATE [Suspect]
     Active Substance: LENVATINIB MESYLATE
     Indication: Endometrial cancer recurrent
     Dosage: 20 MILLIGRAM
     Route: 048
     Dates: start: 20230418, end: 20230620
  5. SYNTHROID [Concomitant]
     Active Substance: LEVOTHYROXINE SODIUM
     Indication: Hypothyroidism
     Dosage: 0.5 TABLET
     Route: 048
     Dates: start: 20221025

REACTIONS (7)
  - Urine protein/creatinine ratio increased [Recovering/Resolving]
  - Hypertension [Recovering/Resolving]
  - Stomatitis [Recovered/Resolved]
  - Dysphonia [Recovered/Resolved]
  - Urinary tract infection [Recovered/Resolved]
  - Nodule [Unknown]
  - Inappropriate schedule of product administration [Unknown]

NARRATIVE: CASE EVENT DATE: 20230426
